FAERS Safety Report 10788777 (Version 2)
Quarter: 2019Q2

REPORT INFORMATION
  Report Type: Report from Study
  Country: AR (occurrence: AR)
  Receive Date: 20150212
  Receipt Date: 20190410
  Transmission Date: 20190711
  Serious: Yes (Other)
  Sender: FDA-Public Use
  Company Number: AR-ASTELLAS-2015US003748

PATIENT
  Age: 79 Year
  Sex: Male

DRUGS (2)
  1. ERLOTINIB [Suspect]
     Active Substance: ERLOTINIB
     Route: 048
     Dates: start: 20110908
  2. ERLOTINIB [Suspect]
     Active Substance: ERLOTINIB
     Indication: PANCREATIC CARCINOMA
     Route: 048
     Dates: start: 20110808

REACTIONS (8)
  - Skin injury [Unknown]
  - Rash [Recovered/Resolved]
  - Eye haemorrhage [Unknown]
  - Dry skin [Recovered/Resolved]
  - Pain of skin [Unknown]
  - Epistaxis [Recovered/Resolved]
  - Lacrimal haemorrhage [Recovered/Resolved]
  - Sensitive skin [Unknown]

NARRATIVE: CASE EVENT DATE: 20110818
